FAERS Safety Report 8042347-6 (Version None)
Quarter: 2012Q1

REPORT INFORMATION
  Report Type: 
  Country: None (occurrence: None)
  Receive Date: 20120112
  Receipt Date: 20120105
  Transmission Date: 20120608
  Serious: Yes (Death, Hospitalization, Other)
  Sender: FDA-Public Use
  Company Number: BR-ELI_LILLY_AND_COMPANY-BR201201001595

PATIENT
  Sex: Male
  Weight: 76 kg

DRUGS (3)
  1. CIALIS [Suspect]
     Dosage: UNK UNK, UNKNOWN
     Route: 065
  2. GLYBURIDE [Concomitant]
     Indication: DIABETES MELLITUS
     Dosage: UNK, UNKNOWN
     Route: 065
  3. LOSARTAN POTASSIUM [Concomitant]
     Indication: BLOOD PRESSURE
     Dosage: UNK, UNKNOWN
     Route: 065

REACTIONS (7)
  - DYSPNOEA [None]
  - CHEST PAIN [None]
  - CARDIAC DISORDER [None]
  - INFARCTION [None]
  - TACHYCARDIA [None]
  - SYNCOPE [None]
  - FLUSHING [None]
